FAERS Safety Report 9133666 (Version 1)
Quarter: 2013Q1

REPORT INFORMATION
  Report Type: Spontaneous
  Country: IT (occurrence: IT)
  Receive Date: 20130302
  Receipt Date: 20130302
  Transmission Date: 20140127
  Serious: Yes (Other)
  Sender: FDA-Public Use
  Company Number: IT-TEVA-388768ISR

PATIENT
  Age: 49 Year
  Sex: Female
  Weight: 70 kg

DRUGS (3)
  1. EPIRUBICINA [Suspect]
     Indication: BREAST CANCER
     Dosage: 150 MILLIGRAM DAILY;
     Route: 042
     Dates: start: 20120720, end: 20121001
  2. FLUOROURACILE [Suspect]
     Indication: BREAST CANCER
     Dosage: 1020 MILLIGRAM DAILY;
     Route: 042
     Dates: start: 20120720, end: 20121001
  3. ENDOXAN BAXTER [Suspect]
     Indication: BREAST CANCER
     Dosage: 1020 MILLIGRAM DAILY;
     Route: 042
     Dates: start: 20120720, end: 20121001

REACTIONS (5)
  - Leukopenia [Recovered/Resolved]
  - Hyposideraemia [Recovered/Resolved]
  - Anaemia [Recovered/Resolved]
  - Metrorrhagia [Recovered/Resolved]
  - Asthenia [Recovered/Resolved]
